FAERS Safety Report 17210885 (Version 1)
Quarter: 2019Q4

REPORT INFORMATION
  Report Type: Spontaneous
  Country: US (occurrence: US)
  Receive Date: 20191227
  Receipt Date: 20191227
  Transmission Date: 20200122
  Serious: No
  Sender: FDA-Public Use
  Company Number: US-VERTEX PHARMACEUTICALS-2019-013297

PATIENT
  Sex: Female

DRUGS (5)
  1. TIMENTIN [TIMOLOL MALEATE] [Concomitant]
     Active Substance: TIMOLOL MALEATE
     Dosage: 3.1 GRAM
  2. GENTAMICIN. [Concomitant]
     Active Substance: GENTAMICIN
     Dosage: 10 MG
  3. TRIKAFTA [Suspect]
     Active Substance: ELEXACAFTOR\IVACAFTOR\TEZACAFTOR
     Indication: CYSTIC FIBROSIS
     Dosage: UNK, BID
     Route: 048
     Dates: start: 20191128
  4. NUCALA [Concomitant]
     Active Substance: MEPOLIZUMAB
     Dosage: 100 MG
     Route: 058
  5. BACTRIM DS [Concomitant]
     Active Substance: SULFAMETHOXAZOLE\TRIMETHOPRIM
     Dosage: UNK

REACTIONS (2)
  - Rash pruritic [Not Recovered/Not Resolved]
  - Urticaria [Recovering/Resolving]

NARRATIVE: CASE EVENT DATE: 2019
